FAERS Safety Report 14634914 (Version 1)
Quarter: 2018Q1

REPORT INFORMATION
  Report Type: Spontaneous
  Country: US (occurrence: US)
  Receive Date: 20180314
  Receipt Date: 20180314
  Transmission Date: 20180509
  Serious: Yes (Other)
  Sender: FDA-Public Use
  Company Number: US-AMGEN-USASP2018032401

PATIENT
  Age: 78 Year
  Sex: Female

DRUGS (1)
  1. PROLIA [Suspect]
     Active Substance: DENOSUMAB
     Indication: PRODUCT USED FOR UNKNOWN INDICATION
     Dosage: UNK
     Route: 065
     Dates: start: 20180201

REACTIONS (9)
  - Pain [Recovered/Resolved]
  - Haemorrhage [Unknown]
  - Rash [Unknown]
  - Gait inability [Unknown]
  - Animal scratch [Not Recovered/Not Resolved]
  - Erythema [Unknown]
  - Knee arthroplasty [Unknown]
  - Gingival bleeding [Unknown]
  - Contusion [Unknown]

NARRATIVE: CASE EVENT DATE: 2018
